FAERS Safety Report 17291199 (Version 1)
Quarter: 2020Q1

REPORT INFORMATION
  Report Type: Spontaneous
  Country: US (occurrence: US)
  Receive Date: 20200121
  Receipt Date: 20200121
  Transmission Date: 20200409
  Serious: Yes (Other)
  Sender: FDA-Public Use
  Company Number: US-ASTRAZENECA-2020SE07005

PATIENT
  Age: 892 Month
  Sex: Female
  Weight: 78 kg

DRUGS (5)
  1. GLIPIZIDE. [Concomitant]
     Active Substance: GLIPIZIDE
     Indication: DIABETES MELLITUS
     Route: 048
  2. LEVOTHYROXINE. [Concomitant]
     Active Substance: LEVOTHYROXINE
     Indication: THYROID DISORDER
     Route: 048
  3. LYNPARZA [Suspect]
     Active Substance: OLAPARIB
     Indication: OVARIAN CANCER
     Route: 048
     Dates: start: 2018
  4. LISINOPRIL. [Concomitant]
     Active Substance: LISINOPRIL
     Indication: BLOOD PRESSURE ABNORMAL
     Route: 048
  5. OMEGA 3 ESTERS [Concomitant]
     Indication: BLOOD CHOLESTEROL ABNORMAL
     Route: 048

REACTIONS (2)
  - Pemphigoid [Not Recovered/Not Resolved]
  - Body height decreased [Unknown]

NARRATIVE: CASE EVENT DATE: 201911
